FAERS Safety Report 8419824-9 (Version None)
Quarter: 2012Q2

REPORT INFORMATION
  Report Type: 
  Country: None (occurrence: None)
  Receive Date: 20120607
  Receipt Date: 20120530
  Transmission Date: 20120825
  Serious: Yes (Hospitalization, Other)
  Sender: FDA-Public Use
  Company Number: PHHY2012JP007646

PATIENT
  Sex: Female

DRUGS (9)
  1. TASIGNA [Suspect]
     Indication: CHRONIC MYELOID LEUKAEMIA
     Dosage: 200 MG, DAILY
     Route: 048
     Dates: start: 20091106, end: 20101004
  2. NITRODERM [Concomitant]
     Dosage: 25 MG, DAILY
     Route: 062
     Dates: start: 20050524
  3. LANIRAPID [Concomitant]
     Dosage: 0.05 MG, DAILY
  4. TRICHLORMETHIAZIDE [Concomitant]
     Dosage: 2 MG, DAILY
     Route: 048
     Dates: start: 20050524
  5. LANSOPRAZOLE [Concomitant]
     Dosage: UNK UKN, UNK
  6. LANIRAPID [Concomitant]
     Dosage: 0.1 MG,DAILY
     Dates: start: 20050524
  7. GOODMIN [Concomitant]
     Dosage: 0.25 MG, DAILY
     Route: 048
  8. LASIX [Concomitant]
     Dosage: 40 MG, DAILY
     Route: 048
  9. MUCOSOLVAN [Concomitant]
     Dosage: 45 MG, DAILY
     Dates: start: 20071009

REACTIONS (3)
  - LIPASE INCREASED [None]
  - GASTROINTESTINAL HAEMORRHAGE [None]
  - ANAEMIA [None]
